FAERS Safety Report 8613578-9 (Version None)
Quarter: 2012Q3

REPORT INFORMATION
  Report Type: 
  Country: None (occurrence: None)
  Receive Date: 20120823
  Receipt Date: 20120813
  Transmission Date: 20120928
  Serious: Yes (Other)
  Sender: FDA-Public Use
  Company Number: BR-AMGEN-BRASP2012047024

PATIENT
  Age: 49 Year
  Sex: Female
  Weight: 74 kg

DRUGS (4)
  1. METHOTREXATE SODIUM [Suspect]
  2. LEFLUNOMIDE [Suspect]
  3. ENBREL [Suspect]
     Indication: RHEUMATOID ARTHRITIS
     Dosage: 50 MG, 1X/WEEK
     Route: 058
     Dates: start: 20120427, end: 20120713
  4. PREDNISONE TAB [Concomitant]
     Dosage: 5 MG, UNK

REACTIONS (2)
  - RHEUMATOID ARTHRITIS [None]
  - HEPATOTOXICITY [None]
